FAERS Safety Report 5409274-1 (Version None)
Quarter: 2007Q3

REPORT INFORMATION
  Report Type: 
  Country: None (occurrence: None)
  Receive Date: 20070809
  Receipt Date: 20070802
  Transmission Date: 20080115
  Serious: Yes (Hospitalization, Other)
  Sender: FDA-Public Use
  Company Number: PHBS2007BR12924

PATIENT
  Age: 74 Year
  Sex: Female
  Weight: 40 kg

DRUGS (7)
  1. TEGRETOL [Suspect]
     Dosage: 1 TABLET/DAY
     Route: 048
  2. TEGRETOL [Suspect]
     Dosage: 1 TABLET/DAY
     Route: 048
  3. GARZEDILOL [Concomitant]
     Dosage: 3.125 MG, BID
     Route: 065
  4. DIGOXIN [Concomitant]
     Dosage: 0.5 TABLET/MORNING
     Route: 048
  5. VASCLIN [Concomitant]
  6. AAS [Concomitant]
     Dosage: 100 MG/DAY
     Route: 048
  7. CARBAMAZEPINE [Suspect]
     Route: 048

REACTIONS (2)
  - DEPRESSION [None]
  - SYNCOPE [None]
